FAERS Safety Report 7607377-4 (Version None)
Quarter: 2011Q3

REPORT INFORMATION
  Report Type: 
  Country: None (occurrence: None)
  Receive Date: 20110713
  Receipt Date: 20110630
  Transmission Date: 20111222
  Serious: Yes (Other)
  Sender: FDA-Public Use
  Company Number: SE-MYLANLABS-2011S1013896

PATIENT
  Sex: Female

DRUGS (1)
  1. DICLOFENAC [Suspect]
     Indication: ARTHRALGIA

REACTIONS (3)
  - DIZZINESS [None]
  - GAIT DISTURBANCE [None]
  - FEELING ABNORMAL [None]
